FAERS Safety Report 6072604-4 (Version None)
Quarter: 2009Q1

REPORT INFORMATION
  Report Type: 
  Country: None (occurrence: None)
  Receive Date: 20090210
  Receipt Date: 20090204
  Transmission Date: 20090719
  Serious: Yes (Hospitalization)
  Sender: FDA-Public Use
  Company Number: CO-ELI_LILLY_AND_COMPANY-CO200901004770

PATIENT
  Age: 49 Year
  Sex: Female

DRUGS (5)
  1. BYETTA [Suspect]
     Indication: TYPE 2 DIABETES MELLITUS
     Dosage: 5 UG, 2/D
     Route: 058
     Dates: start: 20080201, end: 20080501
  2. BYETTA [Suspect]
     Dosage: 10 UG, 2/D
     Route: 058
     Dates: start: 20080501, end: 20081004
  3. COUMADIN [Concomitant]
     Dosage: UNK, UNKNOWN
     Route: 065
  4. PLAVIX [Concomitant]
     Indication: ANTIPHOSPHOLIPID SYNDROME
     Dosage: UNK, UNKNOWN
     Route: 065
  5. METFORMIN HCL [Concomitant]
     Indication: TYPE 2 DIABETES MELLITUS
     Dosage: UNK, UNKNOWN
     Route: 065

REACTIONS (5)
  - ASTHENIA [None]
  - HYPERGLYCAEMIA [None]
  - NAUSEA [None]
  - PULMONARY EMBOLISM [None]
  - WEIGHT DECREASED [None]
